FAERS Safety Report 4575466-7 (Version None)
Quarter: 2005Q1

REPORT INFORMATION
  Report Type: 
  Country: None (occurrence: None)
  Receive Date: 20050209
  Receipt Date: 20050201
  Transmission Date: 20050727
  Serious: Yes (Hospitalization)
  Sender: FDA-Public Use
  Company Number: 200510401JP

PATIENT
  Age: 70 Year
  Sex: Male
  Weight: 40 kg

DRUGS (7)
  1. LASIX [Suspect]
     Indication: CARDIAC FAILURE
     Route: 048
     Dates: start: 20041022, end: 20050131
  2. ASPIRIN [Suspect]
     Indication: ANGINA PECTORIS
     Route: 048
     Dates: start: 20041022, end: 20050131
  3. ARTIST [Suspect]
     Indication: ANGINA PECTORIS
     Route: 048
     Dates: start: 20041022, end: 20050128
  4. DIOVAN [Suspect]
     Indication: CARDIAC FAILURE
     Route: 048
     Dates: start: 20041210, end: 20050122
  5. WARFARIN SODIUM [Suspect]
     Indication: CORONARY ARTERY SURGERY
     Route: 048
     Dates: start: 20041124, end: 20050122
  6. ZYLORIC [Suspect]
     Indication: HYPERURICAEMIA
     Route: 048
     Dates: start: 20041210, end: 20050122
  7. GASTROM [Suspect]
     Route: 048
     Dates: start: 20041124, end: 20050122

REACTIONS (3)
  - HEPATIC FUNCTION ABNORMAL [None]
  - PLATELET COUNT DECREASED [None]
  - RASH [None]
